FAERS Safety Report 24827802 (Version 1)
Quarter: 2025Q1

REPORT INFORMATION
  Report Type: Spontaneous
  Country: PL (occurrence: PL)
  Receive Date: 20250109
  Receipt Date: 20250109
  Transmission Date: 20250408
  Serious: Yes (Life-Threatening)
  Sender: GRIFOLS
  Company Number: None

PATIENT
  Age: 49 Year
  Sex: Male
  Weight: 53 kg

DRUGS (4)
  1. ALBUMIN HUMAN [Suspect]
     Active Substance: ALBUMIN HUMAN
     Indication: Metabolic disorder
     Dosage: 20 GRAM, QD
     Route: 042
     Dates: start: 20231002, end: 20231002
  2. ALBUMIN HUMAN [Suspect]
     Active Substance: ALBUMIN HUMAN
     Indication: Off label use
  3. AMOXICILLIN [Concomitant]
     Active Substance: AMOXICILLIN
     Indication: Product used for unknown indication
     Route: 048
  4. TORSEMIDE [Concomitant]
     Active Substance: TORSEMIDE
     Indication: Alcoholic liver disease
     Dosage: 10 MILLIGRAM, QD
     Route: 048

REACTIONS (4)
  - Rash [Recovered/Resolved]
  - Hypotension [Recovered/Resolved]
  - Dyspnoea [Recovered/Resolved]
  - Pruritus [Recovered/Resolved]

NARRATIVE: CASE EVENT DATE: 20231002
